FAERS Safety Report 22955013 (Version 5)
Quarter: 2023Q4

REPORT INFORMATION
  Report Type: Report from Study
  Country: CN (occurrence: CN)
  Receive Date: 20230918
  Receipt Date: 20231129
  Transmission Date: 20240110
  Serious: Yes (Hospitalization)
  Sender: FDA-Public Use
  Company Number: CN-PFIZER INC-PV202300154237

PATIENT
  Age: 49 Year
  Sex: Male
  Weight: 62 kg

DRUGS (5)
  1. IRINOTECAN HYDROCHLORIDE [Suspect]
     Active Substance: IRINOTECAN HYDROCHLORIDE
     Indication: Colon cancer
     Dosage: 221 MG, BIWEEKLY
     Route: 042
     Dates: start: 20230727, end: 20230908
  2. BEVACIZUMAB [Suspect]
     Active Substance: BEVACIZUMAB
     Indication: Colon cancer
     Dosage: 310 MG, BIWEEKLY
     Route: 042
     Dates: start: 20230727, end: 20230908
  3. OXALIPLATIN [Suspect]
     Active Substance: OXALIPLATIN
     Indication: Colon cancer
     Dosage: 144.5 MG, BIWEEKLY
     Route: 042
     Dates: start: 20230727, end: 20230908
  4. LEUCOVORIN [Suspect]
     Active Substance: LEUCOVORIN\LEUCOVORIN CALCIUM
     Indication: Colon cancer
     Dosage: 680 MG, BIWEEKLY
     Route: 042
     Dates: start: 20230727, end: 20230908
  5. FLUOROURACIL [Suspect]
     Active Substance: FLUOROURACIL
     Indication: Colon cancer
     Dosage: 4080 MG, BIWEEKLY
     Route: 042
     Dates: start: 20230727, end: 20230910

REACTIONS (3)
  - Alanine aminotransferase increased [Recovered/Resolved]
  - Aspartate aminotransferase increased [Recovered/Resolved]
  - Disease recurrence [Recovered/Resolved]

NARRATIVE: CASE EVENT DATE: 20230910
